FAERS Safety Report 20818475 (Version 1)
Quarter: 2022Q2

REPORT INFORMATION
  Report Type: Spontaneous
  Country: US (occurrence: None)
  Receive Date: 20220511
  Receipt Date: 20220511
  Transmission Date: 20220720
  Serious: Yes (Other)
  Sender: FDA-Public Use
  Company Number: None

PATIENT
  Age: 25 Year
  Sex: Female
  Weight: 83 kg

DRUGS (1)
  1. BEBTELOVIMAB [Suspect]
     Active Substance: BEBTELOVIMAB
     Indication: COVID-19
     Dosage: 175MG ONCE?
     Route: 040
     Dates: start: 20220510, end: 20220510

REACTIONS (5)
  - Chills [None]
  - Paraesthesia [None]
  - Dyspnoea [None]
  - Dizziness [None]
  - Fear [None]

NARRATIVE: CASE EVENT DATE: 20220510
